FAERS Safety Report 7535704-5 (Version None)
Quarter: 2011Q2

REPORT INFORMATION
  Report Type: 
  Country: None (occurrence: None)
  Receive Date: 20110602
  Receipt Date: 20110524
  Transmission Date: 20111010
  Serious: Yes (Hospitalization, Other)
  Sender: FDA-Public Use
  Company Number: ACO_23950_2011

PATIENT
  Age: 75 Year
  Sex: Male
  Weight: 73.5 kg

DRUGS (8)
  1. ERGOCALCIFEROL [Concomitant]
  2. MSM 1000 (METHYLSULFONYLMETHANE) [Concomitant]
  3. MULTIVITAMINS (ASCORBIC ACID, ERGOCALCIFEROL, FOLIC ACID, NICOTINAMIDE [Concomitant]
  4. LOSARTAN (LOSARTAN) [Concomitant]
  5. REQUIP [Concomitant]
  6. OMEGA-3-ACID ETHYL ESTERS (LOVAZA) [Concomitant]
  7. AMPYRA [Suspect]
     Indication: MULTIPLE SCLEROSIS
     Dosage: 10 MG, BID, ORAL
     Route: 048
     Dates: start: 20110301, end: 20110401
  8. VITAMIN B 12 (VITAMIN B NOS) [Concomitant]

REACTIONS (9)
  - HEART RATE DECREASED [None]
  - SYNCOPE [None]
  - ARTHRALGIA [None]
  - DIZZINESS POSTURAL [None]
  - PAIN IN EXTREMITY [None]
  - BACK PAIN [None]
  - CONSTIPATION [None]
  - FALL [None]
  - RESTLESS LEGS SYNDROME [None]
